FAERS Safety Report 20811224 (Version 1)
Quarter: 2022Q2

REPORT INFORMATION
  Report Type: Report from Study
  Country: US (occurrence: US)
  Receive Date: 20220510
  Receipt Date: 20220510
  Transmission Date: 20220720
  Serious: Yes (Other)
  Sender: FDA-Public Use
  Company Number: US-CELGENE-USA-20220200940

PATIENT
  Age: 77 Year
  Sex: Male
  Weight: 82.1 kg

DRUGS (1)
  1. REVLIMID [Suspect]
     Active Substance: LENALIDOMIDE
     Indication: Plasma cell myeloma
     Dosage: 25 , 31 MAY 2024
     Route: 048
     Dates: start: 202201

REACTIONS (2)
  - Lower respiratory tract infection [Unknown]
  - Night sweats [Unknown]

NARRATIVE: CASE EVENT DATE: 20220401
